FAERS Safety Report 20723001 (Version 1)
Quarter: 2022Q2

REPORT INFORMATION
  Report Type: Spontaneous
  Country: NL (occurrence: NL)
  Receive Date: 20220419
  Receipt Date: 20220419
  Transmission Date: 20220721
  Serious: Yes (Other)
  Sender: FDA-Public Use
  Company Number: NL-LRB-00801338

PATIENT
  Age: 77 Year
  Sex: Female

DRUGS (4)
  1. ROSUVASTATIN [Suspect]
     Active Substance: ROSUVASTATIN
     Indication: Hypercholesterolaemia
     Dosage: 10 MILLIGRAM, EVERY HOUR (1 X PER DAY 1 TABLET)
     Route: 065
     Dates: start: 20170921, end: 20220331
  2. OMEPRAZOLE [Concomitant]
     Active Substance: OMEPRAZOLE
     Indication: Product used for unknown indication
     Dosage: UNK (GASTRO-RESISTANT CAPSULE, 40 MG (MILLIGRAMS))
     Route: 065
  3. CALCIUM CARBONATE\CHOLECALCIFEROL [Concomitant]
     Active Substance: CALCIUM CARBONATE\CHOLECALCIFEROL
     Indication: Product used for unknown indication
     Dosage: UNK (CHEWABLE TABLET, 2.5 G (GRAMS)/800 UNITS)
     Route: 065
  4. BISOPROLOL [Concomitant]
     Active Substance: BISOPROLOL
     Indication: Product used for unknown indication
     Dosage: UNK (TABLET, 5 MG (MILLIGRAM))
     Route: 065

REACTIONS (2)
  - Hallucination, visual [Recovered/Resolved]
  - Aura [Recovered/Resolved]

NARRATIVE: CASE EVENT DATE: 20211215
